FAERS Safety Report 7392081-0 (Version None)
Quarter: 2011Q2

REPORT INFORMATION
  Report Type: 
  Country: None (occurrence: None)
  Receive Date: 20110404
  Receipt Date: 20110324
  Transmission Date: 20111010
  Serious: Yes (Hospitalization)
  Sender: FDA-Public Use
  Company Number: A0772845A

PATIENT
  Age: 55 Year
  Sex: Female
  Weight: 79.5 kg

DRUGS (4)
  1. LISINOPRIL [Concomitant]
  2. LEVOTHYROXINE [Concomitant]
  3. MULTIPLE MEDICATIONS [Concomitant]
  4. AVANDIA [Suspect]
     Indication: DIABETES MELLITUS
     Dosage: 4MG PER DAY
     Route: 048
     Dates: start: 20001227, end: 20060901

REACTIONS (4)
  - MYOCARDIAL INFARCTION [None]
  - CARDIAC FAILURE CONGESTIVE [None]
  - CORONARY ARTERY DISEASE [None]
  - ACUTE RESPIRATORY FAILURE [None]
